FAERS Safety Report 4954290-7 (Version None)
Quarter: 2006Q1

REPORT INFORMATION
  Report Type: 
  Country: None (occurrence: None)
  Receive Date: 20060327
  Receipt Date: 20060313
  Transmission Date: 20060701
  Serious: Yes (Other)
  Sender: FDA-Public Use
  Company Number: JP-MERCK-0603USA02856

PATIENT
  Age: 59 Year
  Sex: Male

DRUGS (3)
  1. STROMECTOL [Suspect]
     Indication: ACARODERMATITIS
     Route: 048
     Dates: start: 20060301, end: 20060301
  2. STROMECTOL [Suspect]
     Route: 048
     Dates: start: 20060222, end: 20060222
  3. [THERAPY UNSPECIFIED] [Concomitant]
     Route: 065

REACTIONS (2)
  - DEMENTIA [None]
  - NEUROSIS [None]
